FAERS Safety Report 21513965 (Version 1)
Quarter: 2022Q4

REPORT INFORMATION
  Report Type: Spontaneous
  Country: None (occurrence: US)
  Receive Date: 20221027
  Receipt Date: 20221027
  Transmission Date: 20230113
  Serious: Yes (Other)
  Sender: FDA-Public Use
  Company Number: US-Bio Products Laboratory Ltd-2134216

PATIENT
  Age: 27 Year
  Sex: Female

DRUGS (9)
  1. GAMMAPLEX [Suspect]
     Active Substance: HUMAN IMMUNOGLOBULIN G
     Indication: Immunodeficiency common variable
     Route: 042
  2. SYNTHROID [Concomitant]
     Active Substance: LEVOTHYROXINE SODIUM
  3. CYTOMEL [Concomitant]
     Active Substance: LIOTHYRONINE SODIUM
  4. CORLANOR [Concomitant]
     Active Substance: IVABRADINE HYDROCHLORIDE
  5. BISOPROLOL. [Concomitant]
     Active Substance: BISOPROLOL FUMARATE
  6. XYZAL [Concomitant]
     Active Substance: LEVOCETIRIZINE DIHYDROCHLORIDE
  7. PEPCID [Concomitant]
     Active Substance: FAMOTIDINE
  8. THEOPHYLLINE [Concomitant]
     Active Substance: THEOPHYLLINE
  9. Emergency Contraceptive - Birth control pill [Concomitant]

REACTIONS (1)
  - Deep vein thrombosis [Unknown]

NARRATIVE: CASE EVENT DATE: 20211207
